FAERS Safety Report 10177126 (Version 2)
Quarter: 2014Q2

REPORT INFORMATION
  Report Type: Spontaneous
  Country: IT (occurrence: IT)
  Receive Date: 20140516
  Receipt Date: 20140623
  Transmission Date: 20141212
  Serious: Yes (Hospitalization)
  Sender: FDA-Public Use
  Company Number: IT-UCBSA-120530

PATIENT
  Age: 87 Year
  Sex: Male

DRUGS (6)
  1. KEPPRA [Suspect]
     Dosage: 500 MG, ONCE DAILY (QD)
     Route: 048
     Dates: start: 20120101, end: 20140219
  2. GLYCERYL TRINITRATE [Concomitant]
     Indication: CARDIAC DISORDER
     Dosage: 5 MG, ONCE DAILY (QD)
     Route: 062
  3. APROVEL [Concomitant]
     Indication: HYPERTENSION
     Dosage: 300 MG , HALF TABLET EVERY DAY.
     Route: 048
  4. LASIX [Concomitant]
     Indication: HYPERTENSION
     Dosage: 25 MG, ONCE DAILY (QD)
     Route: 048
  5. CARDIOASPIRIN [Concomitant]
     Indication: CARDIAC DISORDER
     Dosage: 100 MG, ONCE DAILY (QD)
     Route: 048
  6. CLEXANE [Concomitant]
     Indication: CARDIAC DISORDER
     Dosage: 4000 UI AXA INJECTABLE SOLUTION
     Route: 058

REACTIONS (3)
  - Agitation [Recovered/Resolved]
  - Confusional state [Recovered/Resolved]
  - Disorientation [Unknown]
